FAERS Safety Report 7751437 (Version 15)
Quarter: 2014Q1

REPORT INFORMATION
  Report Type: Spontaneous
  Country: GB (occurrence: GB)
  Receive Date: 20110107
  Receipt Date: 20140219
  Transmission Date: 20141002
  Serious: Yes (Hospitalization, Other)
  Sender: FDA-Public Use
  Company Number: PHFR2010GB06117

PATIENT
  Age: 49 Year
  Sex: Male

DRUGS (8)
  1. CLOZARIL [Suspect]
     Indication: SCHIZOPHRENIA
     Dosage: UNK UKN, UNK
     Route: 048
     Dates: start: 1997
  2. CLOZARIL [Suspect]
     Dosage: 500 MG PER DAY
     Route: 048
     Dates: start: 2005
  3. CLOZARIL [Suspect]
     Dosage: UNK UKN, UNK
     Route: 048
     Dates: start: 20071130
  4. VALPROATE SODIUM [Concomitant]
     Indication: SCHIZOAFFECTIVE DISORDER
     Dosage: 1 G, QD
     Route: 048
  5. VALPROATE SODIUM [Concomitant]
     Indication: AFFECTIVE DISORDER
  6. RISPERIDONE [Concomitant]
     Indication: SCHIZOAFFECTIVE DISORDER
     Dosage: 4 MG, QD
     Route: 048
  7. SALMETEROL [Concomitant]
     Indication: CHRONIC OBSTRUCTIVE PULMONARY DISEASE
     Dosage: UNK UKN, UNK
     Route: 055
  8. TIOTROPIUM [Concomitant]
     Dosage: UNK UKN, UNK
     Route: 055

REACTIONS (15)
  - Tuberculosis [Recovered/Resolved]
  - Chest discomfort [Unknown]
  - Malaise [Unknown]
  - Ear infection [Recovering/Resolving]
  - Orchitis [Recovering/Resolving]
  - Cellulitis [Recovering/Resolving]
  - Hepatitis C [Not Recovered/Not Resolved]
  - Liver function test abnormal [Not Recovered/Not Resolved]
  - Platelet count decreased [Not Recovered/Not Resolved]
  - Eosinophil count increased [Unknown]
  - Monocyte count increased [Unknown]
  - Lymphocyte count increased [Unknown]
  - Differential white blood cell count abnormal [Recovering/Resolving]
  - Leukocytosis [Recovering/Resolving]
  - Lower respiratory tract infection [Recovered/Resolved]
